FAERS Safety Report 6890119-8 (Version None)
Quarter: 2010Q3

REPORT INFORMATION
  Report Type: 
  Country: None (occurrence: None)
  Receive Date: 20100730
  Receipt Date: 20080826
  Transmission Date: 20110219
  Serious: No
  Sender: FDA-Public Use
  Company Number: US-PFIZER INC-2008065398

PATIENT
  Sex: Male
  Weight: 80.74 kg

DRUGS (7)
  1. LIPITOR [Suspect]
     Indication: BLOOD CHOLESTEROL INCREASED
     Route: 048
     Dates: start: 20080601, end: 20080601
  2. VASOTEC [Concomitant]
  3. DICLOFENAC SODIUM [Concomitant]
  4. VALIUM [Concomitant]
  5. PRILOSEC [Concomitant]
  6. SERETIDE MITE [Concomitant]
  7. OXYCONTIN [Concomitant]

REACTIONS (2)
  - ABDOMINAL PAIN LOWER [None]
  - ABDOMINAL PAIN UPPER [None]
